FAERS Safety Report 4331932-0 (Version None)
Quarter: 2004Q2

REPORT INFORMATION
  Report Type: 
  Country: None (occurrence: None)
  Receive Date: 20040405
  Receipt Date: 20030522
  Transmission Date: 20050107
  Serious: No
  Sender: FDA-Public Use
  Company Number: US-GLAXOSMITHKLINE-A0409392A

PATIENT
  Age: 66 Year
  Sex: Female

DRUGS (7)
  1. SEREVENT [Suspect]
     Dosage: 2PUFF TWICE PER DAY
     Route: 055
  2. VENTOLIN [Suspect]
     Route: 065
  3. ADVAIR DISKUS 100/50 [Suspect]
     Route: 055
  4. SINGULAIR [Concomitant]
  5. ALBUTEROL [Concomitant]
  6. MULTI-VITAMIN [Concomitant]
  7. FLOVENT [Concomitant]
     Route: 055

REACTIONS (5)
  - DIZZINESS [None]
  - DRUG INEFFECTIVE [None]
  - NASOPHARYNGEAL DISORDER [None]
  - PALPITATIONS [None]
  - URTICARIA [None]
